FAERS Safety Report 12248146 (Version 1)
Quarter: 2016Q2

REPORT INFORMATION
  Report Type: Spontaneous
  Country: US (occurrence: None)
  Receive Date: 20160407
  Receipt Date: 20160407
  Transmission Date: 20160815
  Serious: Yes (Other)
  Sender: FDA-Public Use
  Company Number: None

PATIENT
  Age: 52 Year
  Sex: Male
  Weight: 113.4 kg

DRUGS (1)
  1. DIVALPROEX, 250MG [Suspect]
     Active Substance: DIVALPROEX SODIUM
     Route: 048

REACTIONS (1)
  - Lipase increased [None]

NARRATIVE: CASE EVENT DATE: 20160325
